FAERS Safety Report 18877535 (Version 2)
Quarter: 2021Q3

REPORT INFORMATION
  Report Type: Report from Study
  Country: JP (occurrence: JP)
  Receive Date: 20210211
  Receipt Date: 20210719
  Transmission Date: 20211014
  Serious: Yes (Life-Threatening, Hospitalization)
  Sender: FDA-Public Use
  Company Number: JP-KYOWAKIRIN-2020AKK018996

PATIENT

DRUGS (62)
  1. CHLORPHENIRAMINE MALEATE. [Concomitant]
     Active Substance: CHLORPHENIRAMINE MALEATE
     Indication: PROPHYLAXIS
     Dosage: UNK
     Route: 065
     Dates: start: 20161114, end: 20161114
  2. ISCOTIN [Concomitant]
     Active Substance: ISONIAZID
     Indication: INFECTION PROPHYLAXIS
     Dosage: UNK
     Route: 048
     Dates: start: 20161112, end: 20161228
  3. FLUCONAZOLE. [Concomitant]
     Active Substance: FLUCONAZOLE
     Indication: INFECTION PROPHYLAXIS
     Dosage: UNK
     Route: 048
     Dates: start: 20161112, end: 20161201
  4. PREDONINE [PREDNISOLONE ACETATE] [Concomitant]
     Active Substance: PREDNISOLONE ACETATE
     Indication: PROPHYLAXIS
     Dosage: UNK
     Route: 048
  5. LOXOPROFEN [Concomitant]
     Active Substance: LOXOPROFEN
     Dosage: UNK
     Route: 048
     Dates: end: 20161218
  6. TRAMCET [Concomitant]
     Active Substance: ACETAMINOPHEN\TRAMADOL
     Dosage: UNK
     Route: 048
     Dates: end: 20170103
  7. ALFACALCIDOL [Concomitant]
     Active Substance: ALFACALCIDOL
     Dosage: UNK
     Route: 048
     Dates: end: 20161228
  8. GRANISETRON [Concomitant]
     Active Substance: GRANISETRON
     Indication: PROPHYLAXIS
     Dosage: UNK
     Route: 065
     Dates: start: 20161115, end: 20161210
  9. MAXIPIME [Concomitant]
     Active Substance: CEFEPIME HYDROCHLORIDE
     Indication: PYREXIA
     Dosage: UNK
     Route: 065
     Dates: start: 20161205, end: 20170205
  10. SALICYLIC ACID. [Concomitant]
     Active Substance: SALICYLIC ACID
     Indication: ERYTHEMA
     Dosage: UNK
     Route: 061
     Dates: start: 20170116, end: 20170127
  11. OMEGACIN [Concomitant]
     Active Substance: BIAPENEM
     Indication: PYREXIA
     Dosage: UNK
     Route: 065
     Dates: start: 20161231, end: 20170113
  12. EBASTEL OD [Concomitant]
     Indication: ERYTHEMA
     Dosage: UNK
     Route: 048
     Dates: start: 20161212, end: 20161226
  13. SAXIZON [Concomitant]
     Active Substance: HYDROCORTISONE SODIUM SUCCINATE
     Indication: PYREXIA
     Dosage: UNK
     Route: 065
     Dates: start: 20161202, end: 20170210
  14. FUROSEMIDE. [Concomitant]
     Active Substance: FUROSEMIDE
     Indication: PROPHYLAXIS
     Dosage: UNK
     Route: 065
     Dates: start: 20170209, end: 20170209
  15. SEISHOKU [Concomitant]
     Active Substance: SODIUM CHLORIDE
     Indication: PYREXIA
     Dosage: UNK
     Route: 065
     Dates: start: 20161222, end: 20161227
  16. DAIPHEN [Concomitant]
     Active Substance: SULFAMETHOXAZOLE\TRIMETHOPRIM
     Indication: INFECTION PROPHYLAXIS
     Dosage: UNK
     Route: 048
     Dates: start: 20161112, end: 20161228
  17. RIMATIL [Concomitant]
     Active Substance: BUCILLAMINE
     Dosage: UNK
     Route: 048
     Dates: end: 20161123
  18. LOCOID [Concomitant]
     Active Substance: HYDROCORTISONE BUTYRATE
     Dosage: UNK
     Route: 061
     Dates: end: 20170117
  19. ALESION [Concomitant]
     Active Substance: EPINASTINE HYDROCHLORIDE
     Indication: ERYTHEMA
     Dosage: UNK
     Route: 048
     Dates: start: 20161128, end: 20161204
  20. NOVOLIN R [Concomitant]
     Active Substance: INSULIN HUMAN
     Indication: PYREXIA
     Dosage: UNK
     Route: 065
     Dates: start: 20161229, end: 20170209
  21. FILGRASTIM BS [FILGRASTIM BIOSIMILAR 1] [Concomitant]
     Active Substance: FILGRASTIM
     Indication: WHITE BLOOD CELL COUNT DECREASED
     Dosage: UNK
     Route: 065
     Dates: start: 20161124, end: 20161203
  22. AZUNOL [GUAIAZULENE] [Concomitant]
     Active Substance: GUAIAZULENE
     Indication: ANAL EROSION
     Dosage: UNK
     Route: 061
     Dates: start: 20170104, end: 20170105
  23. DENOSINE [GANCICLOVIR] [Concomitant]
     Active Substance: GANCICLOVIR
     Indication: PYREXIA
     Dosage: UNK
     Route: 065
     Dates: start: 20161230, end: 20170209
  24. MIYA?BM [Concomitant]
     Active Substance: CLOSTRIDIUM BUTYRICUM SPORES STRAIN M-55
     Indication: PROPHYLAXIS
     Dosage: UNK
     Route: 048
     Dates: end: 20161228
  25. RABEPRAZOLE NA [Concomitant]
     Active Substance: RABEPRAZOLE SODIUM
     Indication: PROPHYLAXIS
     Dosage: UNK
     Route: 048
     Dates: start: 20161025, end: 20161228
  26. JUVELA N [Concomitant]
     Active Substance: TOCOPHERYL NICOTINATE, D-.ALPHA.
     Indication: PROPHYLAXIS
     Dosage: UNK
     Route: 048
     Dates: end: 20161228
  27. LYRICA [Concomitant]
     Active Substance: PREGABALIN
     Dosage: UNK
     Route: 048
     Dates: end: 20161228
  28. DERMOVATE [Concomitant]
     Active Substance: CLOBETASOL
     Indication: ERYTHEMA
     Dosage: UNK
     Route: 061
     Dates: start: 20161121, end: 20170127
  29. SAMSCA [Concomitant]
     Active Substance: TOLVAPTAN
     Indication: PYREXIA
     Dosage: UNK
     Route: 048
     Dates: start: 20161128, end: 20161228
  30. LEVOFLOXACIN HEMIHYDRATE [Concomitant]
     Active Substance: LEVOFLOXACIN
     Indication: PYREXIA
     Dosage: UNK
     Route: 048
     Dates: start: 20161130, end: 20161202
  31. ROPION [Concomitant]
     Active Substance: FLURBIPROFEN AXETIL
     Indication: PYREXIA
     Dosage: UNK
     Route: 065
     Dates: start: 20161229, end: 20170124
  32. SEISHOKU [Concomitant]
     Active Substance: SODIUM CHLORIDE
     Dosage: UNK
     Route: 065
     Dates: start: 20161231, end: 20170113
  33. UBIDECARENONE. [Concomitant]
     Active Substance: UBIDECARENONE
     Indication: PROPHYLAXIS
     Dosage: UNK
     Route: 048
     Dates: end: 20161228
  34. REFLAP [Concomitant]
     Indication: ERYTHEMA
     Dosage: UNK
     Route: 061
     Dates: start: 20161121, end: 20161122
  35. TALION [BEPOTASTINE BESILATE] [Concomitant]
     Active Substance: BEPOTASTINE BESYLATE
     Indication: ERYTHEMA
     Dosage: UNK
     Route: 048
     Dates: start: 20161121, end: 20161201
  36. FAMOTIDINE. [Concomitant]
     Active Substance: FAMOTIDINE
     Indication: PROPHYLAXIS
     Dosage: UNK
     Route: 048
     Dates: end: 20161123
  37. FUROSEMIDE. [Concomitant]
     Active Substance: FUROSEMIDE
     Indication: PYREXIA
     Dosage: UNK
     Route: 048
     Dates: start: 20161128, end: 20161228
  38. GASTER [Concomitant]
     Active Substance: FAMOTIDINE
     Indication: PROPHYLAXIS
     Dosage: UNK
     Route: 065
     Dates: start: 20161228, end: 20170209
  39. ACTEMRA [Concomitant]
     Active Substance: TOCILIZUMAB
     Indication: INTERLEUKIN LEVEL INCREASED
     Dosage: UNK
     Route: 065
     Dates: start: 20170128, end: 20170128
  40. FEBURIC [Concomitant]
     Active Substance: FEBUXOSTAT
     Indication: PROPHYLAXIS
     Dosage: UNK
     Route: 048
     Dates: end: 20161228
  41. BERAPROST SODIUM [Concomitant]
     Active Substance: BERAPROST SODIUM
     Indication: PROPHYLAXIS
     Dosage: UNK
     Route: 048
     Dates: end: 20161228
  42. OLOPATADINE HYDROCHLORIDE OD [Concomitant]
     Dosage: UNK
     Route: 048
     Dates: end: 20161228
  43. PROTOPIC [Concomitant]
     Active Substance: TACROLIMUS
     Dosage: UNK
     Route: 061
     Dates: end: 20170127
  44. METHADERM [Concomitant]
     Active Substance: DEXAMETHASONE DIPROPIONATE
     Dosage: UNK
     Route: 061
     Dates: end: 20161122
  45. UNASYN S [Concomitant]
     Active Substance: AMPICILLIN SODIUM\SULBACTAM SODIUM
     Indication: PYREXIA
     Dosage: UNK
     Route: 065
     Dates: start: 20161222, end: 20161227
  46. CEFDINIR. [Concomitant]
     Active Substance: CEFDINIR
     Indication: PYREXIA
     Dosage: UNK
     Route: 048
     Dates: start: 20161130, end: 20161202
  47. ORGARAN [Concomitant]
     Active Substance: DANAPAROID SODIUM
     Indication: PROPHYLAXIS
     Dosage: UNK
     Route: 065
     Dates: start: 20170123, end: 20170204
  48. MOGAMULIZUMAB [Suspect]
     Active Substance: MOGAMULIZUMAB
     Indication: ADULT T-CELL LYMPHOMA/LEUKAEMIA
     Dosage: 1 MG/KG
     Route: 041
     Dates: start: 20161114, end: 20161114
  49. DEXART [Concomitant]
     Active Substance: DEXAMETHASONE SODIUM PHOSPHATE
     Indication: PROPHYLAXIS
     Dosage: 6.6 MG
     Route: 065
     Dates: start: 20161114, end: 20161114
  50. SENNOSIDE [SENNOSIDE A+B CALCIUM] [Concomitant]
     Active Substance: SENNOSIDES A AND B
     Indication: PROPHYLAXIS
     Dosage: UNK
     Route: 048
     Dates: end: 20161228
  51. PREDNISOLONE. [Concomitant]
     Active Substance: PREDNISOLONE
     Indication: PROPHYLAXIS
     Dosage: UNK
     Route: 048
     Dates: end: 20161228
  52. PREDONINE [PREDNISOLONE SODIUM SUCCINATE] [Concomitant]
     Active Substance: PREDNISOLONE SODIUM SUCCINATE
     Dosage: UNK
     Route: 065
     Dates: end: 20170209
  53. XYZAL [Concomitant]
     Active Substance: LEVOCETIRIZINE DIHYDROCHLORIDE
     Indication: ERYTHEMA
     Dosage: UNK
     Route: 048
     Dates: start: 20161205, end: 20161211
  54. NEUTROGIN [Concomitant]
     Active Substance: LENOGRASTIM
     Indication: WHITE BLOOD CELL COUNT DECREASED
     Dosage: UNK
     Route: 065
     Dates: start: 20161216, end: 20161222
  55. MAGMITT [Concomitant]
     Active Substance: MAGNESIUM OXIDE
     Indication: PROPHYLAXIS
     Dosage: UNK
     Route: 048
     Dates: end: 20161130
  56. MAGNESIUM OXIDE. [Concomitant]
     Active Substance: MAGNESIUM OXIDE
     Indication: PROPHYLAXIS
     Dosage: UNK
     Route: 048
     Dates: start: 20161117, end: 20161228
  57. EPADEL?S [Concomitant]
     Active Substance: ICOSAPENT ETHYL
     Indication: PROPHYLAXIS
     Dosage: UNK
     Route: 048
     Dates: end: 20161123
  58. FUNGUARD [Concomitant]
     Active Substance: MICAFUNGIN SODIUM
     Indication: PYREXIA
     Dosage: UNK
     Route: 065
     Dates: start: 20161228, end: 20170203
  59. OXAROL [Concomitant]
     Active Substance: MAXACALCITOL
     Indication: ERYTHEMA
     Dosage: UNK
     Route: 061
     Dates: start: 20161205, end: 20170127
  60. NEW LECICARBON [Concomitant]
     Active Substance: SODIUM BICARBONATE\SODIUM PHOSPHATE, MONOBASIC
     Indication: PROPHYLAXIS
     Dosage: UNK
     Route: 054
     Dates: start: 20170202, end: 20170208
  61. SOL?MELCORT [Concomitant]
     Active Substance: METHYLPREDNISOLONE SODIUM SUCCINATE
     Indication: PROPHYLAXIS
     Dosage: UNK
     Route: 065
     Dates: start: 20161222, end: 20161224
  62. ITRACONAZOLE. [Concomitant]
     Active Substance: ITRACONAZOLE
     Indication: PROPHYLAXIS
     Dosage: UNK
     Route: 048
     Dates: start: 20161202, end: 20161228

REACTIONS (5)
  - Infusion related reaction [Not Recovered/Not Resolved]
  - Erythema [Not Recovered/Not Resolved]
  - Interleukin level increased [Not Recovered/Not Resolved]
  - White blood cell count decreased [Recovered/Resolved]
  - Anal erosion [Recovering/Resolving]

NARRATIVE: CASE EVENT DATE: 20161121
